FAERS Safety Report 16280124 (Version 1)
Quarter: 2019Q2

REPORT INFORMATION
  Report Type: Spontaneous
  Country: SE (occurrence: SE)
  Receive Date: 20190507
  Receipt Date: 20190507
  Transmission Date: 20190711
  Serious: Yes (Other)
  Sender: FDA-Public Use
  Company Number: SE-TEVA-2019-SE-1045156

PATIENT
  Age: 77 Year
  Sex: Female

DRUGS (21)
  1. GABAPENTIN. [Concomitant]
     Active Substance: GABAPENTIN
     Dosage: 3 + 2 + 3
  2. ENALAPRIL [Concomitant]
     Active Substance: ENALAPRIL
     Dosage: 20 MILLIGRAM DAILY;
  3. FURADANTIN 50 MG TABLETT [Concomitant]
     Dosage: 150 MILLIGRAM DAILY;
     Dates: start: 20190328
  4. HUMIRA [Concomitant]
     Active Substance: ADALIMUMAB
     Dosage: 40 MG/0,4 ML
  5. OXASCAND 15 MG TABLETT [Concomitant]
     Active Substance: OXAZEPAM
  6. SALAZOPYRIN EN 500 MG ENTEROTABLETT [Concomitant]
     Dosage: 2000 MILLIGRAM DAILY;
  7. TROMBYL 75 MG TABLETT [Concomitant]
     Active Substance: ASPIRIN
     Dosage: 75 MILLIGRAM DAILY;
  8. OXYCODONE [Suspect]
     Active Substance: OXYCODONE
     Dosage: IF NECESSARY
  9. ZOLPIDEM [Concomitant]
     Active Substance: ZOLPIDEM\ZOLPIDEM TARTRATE
     Dosage: 5 MG TO NIGHT IF NEEDED
  10. ALVEDON 500 MG FILMDRAGERAD TABLETT [Concomitant]
     Dosage: 1-2 X 1-4
  11. BEHEPAN 1 MG FILMDRAGERAD TABLETT [Concomitant]
     Dosage: 1 MILLIGRAM DAILY;
  12. OXYCODONE [Suspect]
     Active Substance: OXYCODONE
     Dosage: 40 MILLIGRAM DAILY;
  13. PARAFLEX [Concomitant]
     Active Substance: CHLORZOXAZONE
  14. TRESIBA [Concomitant]
     Active Substance: INSULIN DEGLUDEC
     Dosage: 22 UNITS IN THE MORNING
  15. MOVICOL [Concomitant]
     Active Substance: POLYETHYLENE GLYCOL 3350\POTASSIUM CHLORIDE\SODIUM BICARBONATE\SODIUM CHLORIDE
  16. MIRTAZAPINE. [Concomitant]
     Active Substance: MIRTAZAPINE
     Dosage: 45 MILLIGRAM DAILY;
  17. HIPREX 1 G TABLETT [Concomitant]
     Dosage: 2 GRAM DAILY;
  18. KALCIPOS-D FORTE 500 MG/800 IE FILMDRAGERAD TABLETT [Concomitant]
     Dosage: 1 TABLET TO THE EVENING
  19. LIVIAL 2,5 MG TABLETT [Concomitant]
     Dosage: 2.5 MILLIGRAM DAILY;
  20. AMITRIPTYLINE [Concomitant]
     Active Substance: AMITRIPTYLINE
     Dosage: 75 MILLIGRAM DAILY;
  21. OMEPRAZOLE. [Concomitant]
     Active Substance: OMEPRAZOLE

REACTIONS (3)
  - Hypoventilation [Recovered/Resolved]
  - Confusional state [Recovered/Resolved]
  - Toxicity to various agents [Recovered/Resolved]

NARRATIVE: CASE EVENT DATE: 2019
